FAERS Safety Report 4819679-5 (Version None)
Quarter: 2005Q4

REPORT INFORMATION
  Report Type: 
  Country: None (occurrence: None)
  Receive Date: 20051102
  Receipt Date: 20051019
  Transmission Date: 20060501
  Serious: Yes (Hospitalization)
  Sender: FDA-Public Use
  Company Number: 2005BI019386

PATIENT
  Age: 35 Year
  Sex: Female
  Weight: 77.1115 kg

DRUGS (4)
  1. AVONEX [Suspect]
     Indication: MULTIPLE SCLEROSIS
     Dosage: 30 UG; QW; IM
     Route: 030
     Dates: start: 20050819, end: 20051007
  2. ZOLOFT [Concomitant]
  3. WELLBUTRIN [Concomitant]
  4. PRENATAL VITAMINS [Concomitant]

REACTIONS (4)
  - HYPERHIDROSIS [None]
  - INFLUENZA LIKE ILLNESS [None]
  - PNEUMONIA [None]
  - PREGNANCY [None]
